FAERS Safety Report 19098257 (Version 1)
Quarter: 2021Q2

REPORT INFORMATION
  Report Type: Spontaneous
  Country: US (occurrence: US)
  Receive Date: 20210406
  Receipt Date: 20210406
  Transmission Date: 20210717
  Serious: No
  Sender: FDA-Public Use
  Company Number: US-SOMERSET-2021-US-000058

PATIENT
  Sex: Female

DRUGS (8)
  1. DRY EYE RELIEF 0.5% [Concomitant]
  2. LIPITOR 10 MG [Concomitant]
     Route: 048
  3. DYAZIDE [Concomitant]
     Active Substance: HYDROCHLOROTHIAZIDE\TRIAMTERENE
     Route: 048
  4. LATANOPROST 0.005% O/S [Concomitant]
  5. BRIMONIDINE TARTRATE OPHTHALMIC SOLUTION [Suspect]
     Active Substance: BRIMONIDINE TARTRATE
     Dates: start: 20210129, end: 20210206
  6. LISINOPRIL. [Concomitant]
     Active Substance: LISINOPRIL
     Route: 048
  7. NIFEDPINE 30 MG [Concomitant]
     Route: 048
  8. CARVEDILOL 25 MG [Concomitant]
     Active Substance: CARVEDILOL
     Route: 048

REACTIONS (2)
  - Eye irritation [Recovered/Resolved]
  - Eye pain [Recovered/Resolved]

NARRATIVE: CASE EVENT DATE: 20210129
